FAERS Safety Report 10262712 (Version 1)
Quarter: 2014Q2

REPORT INFORMATION
  Report Type: Spontaneous
  Country: CN (occurrence: CN)
  Receive Date: 20140626
  Receipt Date: 20140626
  Transmission Date: 20141212
  Serious: Yes (Other)
  Sender: FDA-Public Use
  Company Number: CN-ROCHE-1422771

PATIENT
  Age: 70 Year
  Sex: Female
  Weight: 66 kg

DRUGS (5)
  1. RITUXIMAB [Suspect]
     Indication: NON-HODGKIN^S LYMPHOMA
     Route: 041
     Dates: start: 20130909, end: 20130909
  2. BLEOMYCIN [Concomitant]
  3. METHYLPREDNISOLONE [Concomitant]
  4. PROMETHAZINE [Concomitant]
  5. SODIUM CHLORIDE [Concomitant]
     Route: 065

REACTIONS (8)
  - Bronchospasm [Recovering/Resolving]
  - Chills [Recovering/Resolving]
  - Hyperpyrexia [Recovering/Resolving]
  - Sinus tachycardia [Recovering/Resolving]
  - Blood pressure increased [Recovering/Resolving]
  - Loss of consciousness [Recovering/Resolving]
  - Chest discomfort [Recovering/Resolving]
  - Asthma [Recovering/Resolving]
